FAERS Safety Report 7319324-3 (Version None)
Quarter: 2011Q1

REPORT INFORMATION
  Report Type: 
  Country: None (occurrence: None)
  Receive Date: 20110228
  Receipt Date: 20100201
  Transmission Date: 20110831
  Serious: No
  Sender: FDA-Public Use
  Company Number: A0842338A

PATIENT
  Age: 23 Year
  Sex: Female

DRUGS (6)
  1. SEROQUEL [Concomitant]
  2. WELLBUTRIN [Concomitant]
  3. DETROL [Concomitant]
  4. LAMICTAL [Suspect]
     Indication: BIPOLAR DISORDER
     Dosage: 100MG VARIABLE DOSE
     Route: 048
     Dates: start: 20080101, end: 20100201
  5. ZOLOFT [Concomitant]
  6. PRILOSEC [Concomitant]

REACTIONS (1)
  - RASH [None]
